FAERS Safety Report 9798223 (Version 2)
Quarter: 2014Q2

REPORT INFORMATION
  Report Type: Spontaneous
  Country: FR (occurrence: FR)
  Receive Date: 20140106
  Receipt Date: 20140414
  Transmission Date: 20141212
  Serious: Yes (Hospitalization)
  Sender: FDA-Public Use
  Company Number: FR-SA-2013SA136027

PATIENT
  Age: 55 Year
  Sex: Female

DRUGS (7)
  1. STILNOX [Suspect]
     Indication: PRODUCT USED FOR UNKNOWN INDICATION
     Dosage: FORM: FILM-COATED SCORED TABLET
     Route: 048
     Dates: start: 20131103, end: 20131111
  2. PRADAXA [Suspect]
     Indication: PRODUCT USED FOR UNKNOWN INDICATION
     Route: 048
     Dates: start: 20131104, end: 20131112
  3. ESTREVA [Concomitant]
     Dosage: STRENGTH: 0.1 %, FORM: GEL, FREQUENCY: 1 APPLICATION PER DAY
  4. COLPRONE [Concomitant]
     Dosage: STRENGTH: 5 MG
     Route: 048
  5. DOLIPRANE [Concomitant]
     Route: 048
     Dates: start: 201311
  6. CEFAZOLIN [Concomitant]
     Route: 048
     Dates: start: 20131104, end: 20131105
  7. OXYCONTIN [Concomitant]
     Dates: start: 20131105, end: 20131106

REACTIONS (4)
  - Skin exfoliation [Recovered/Resolved]
  - Rash [Recovered/Resolved]
  - Pruritus [Recovered/Resolved]
  - Eosinophilia [Unknown]
